APPROVED DRUG PRODUCT: PAROXETINE HYDROCHLORIDE
Active Ingredient: PAROXETINE HYDROCHLORIDE
Strength: EQ 10MG BASE/5ML
Dosage Form/Route: SUSPENSION;ORAL
Application: A215003 | Product #001
Applicant: NOVITIUM PHARMA LLC
Approved: Sep 3, 2021 | RLD: No | RS: Yes | Type: RX